FAERS Safety Report 5505872-5 (Version None)
Quarter: 2007Q4

REPORT INFORMATION
  Report Type: 
  Country: None (occurrence: None)
  Receive Date: 20071102
  Receipt Date: 20070926
  Transmission Date: 20080405
  Serious: Yes (Other)
  Sender: FDA-Public Use
  Company Number: JP-MERCK-0710USA00300

PATIENT
  Age: 70 Year
  Sex: Male

DRUGS (11)
  1. PEPCID [Suspect]
     Route: 048
  2. [THERAPY UNSPECIFIED] [Concomitant]
     Indication: PROPHYLAXIS
     Route: 048
     Dates: start: 20041201, end: 20050905
  3. POTASSIUM (UNSPECIFIED) [Concomitant]
     Route: 048
  4. ASPIRIN [Concomitant]
     Route: 048
  5. DISTIGMINE BROMIDE [Concomitant]
     Route: 048
  6. AMITRIPTYLINE HYDROCHLORIDE [Concomitant]
     Route: 048
  7. TERAZOSIN HYDROCHLORIDE [Concomitant]
     Route: 048
  8. URSODIOL [Concomitant]
     Route: 048
  9. MECOBALAMIN [Concomitant]
     Route: 048
  10. MEQUITAZINE [Concomitant]
     Route: 048
  11. INSULIN [Concomitant]
     Route: 065

REACTIONS (1)
  - CEREBRAL INFARCTION [None]
